FAERS Safety Report 16773757 (Version 1)
Quarter: 2019Q3

REPORT INFORMATION
  Report Type: Spontaneous
  Country: JP (occurrence: JP)
  Receive Date: 20190904
  Receipt Date: 20190904
  Transmission Date: 20191005
  Serious: Yes (Death)
  Sender: FDA-Public Use
  Company Number: JP-CELLTRION INC.-2019JP024353

PATIENT

DRUGS (3)
  1. CDDP [Concomitant]
     Active Substance: CISPLATIN
     Indication: GASTRIC CANCER
     Dosage: UNK
     Route: 041
  2. 5-FU [FLUOROURACIL] [Concomitant]
     Active Substance: FLUOROURACIL
     Indication: GASTRIC CANCER
     Dosage: UNK
     Route: 041
  3. TRASTUZUMAB BS FOR I.V. INFUSION ?CTH? [Suspect]
     Active Substance: TRASTUZUMAB
     Indication: GASTRIC CANCER
     Dosage: 300 MG/DAY (300 MG, 1 IN 1 D)
     Route: 041
     Dates: start: 20171228

REACTIONS (2)
  - Anaemia [Fatal]
  - General physical health deterioration [Fatal]
